FAERS Safety Report 20432902 (Version 3)
Quarter: 2022Q3

REPORT INFORMATION
  Report Type: Spontaneous
  Country: US (occurrence: US)
  Receive Date: 20220205
  Receipt Date: 20220911
  Transmission Date: 20221027
  Serious: No
  Sender: FDA-Public Use
  Company Number: US-SA-SAC20220128000154

PATIENT
  Age: 23 Year
  Sex: Male

DRUGS (6)
  1. CEREZYME [Suspect]
     Active Substance: IMIGLUCERASE
     Indication: Gaucher^s disease
     Dosage: 4400 IU/ML, QOW
     Route: 042
     Dates: start: 20041115
  2. EPINEPHRINE [Concomitant]
     Active Substance: EPINEPHRINE
  3. IBUPROFEN [Concomitant]
     Active Substance: IBUPROFEN
  4. BENADRYL [Concomitant]
     Active Substance: DIPHENHYDRAMINE HYDROCHLORIDE
  5. CIPROFLOXCN [Concomitant]
  6. SODIUM CHLORIDE [Concomitant]
     Active Substance: SODIUM CHLORIDE

REACTIONS (3)
  - COVID-19 [Unknown]
  - Malaise [Unknown]
  - Oropharyngeal pain [Unknown]
